FAERS Safety Report 18877351 (Version 2)
Quarter: 2021Q1

REPORT INFORMATION
  Report Type: Report from Study
  Country: MX (occurrence: MX)
  Receive Date: 20210211
  Receipt Date: 20210227
  Transmission Date: 20210420
  Serious: Yes (Other)
  Sender: FDA-Public Use
  Company Number: NVSC2021MX025947

PATIENT
  Age: 75 Year
  Sex: Male
  Weight: 108 kg

DRUGS (5)
  1. DIOVAN [Suspect]
     Active Substance: VALSARTAN
     Indication: BLOOD PRESSURE ABNORMAL
     Dosage: 160 MG, QD (1 YEAR AGO AND 1 MONTH AGO)
     Route: 048
     Dates: start: 202001
  2. ACENOCUMAROL [Concomitant]
     Active Substance: ACENOCOUMAROL
     Indication: COAGULOPATHY
     Dosage: 1 MG, QD (AT NIGHT)
     Route: 048
     Dates: start: 1999
  3. TAMSULOSIN [Concomitant]
     Active Substance: TAMSULOSIN
     Indication: PROSTATE INFECTION
     Dosage: 10 YEARS AGO
     Route: 048
  4. CO?DIOVAN [Suspect]
     Active Substance: HYDROCHLOROTHIAZIDE\VALSARTAN
     Indication: BLOOD PRESSURE ABNORMAL
     Dosage: 1 DF, BID
     Route: 048
     Dates: start: 2011
  5. FINASTERIDE. [Concomitant]
     Active Substance: FINASTERIDE
     Indication: PROSTATE INFECTION
     Dosage: 10 YEARS AGO
     Route: 048

REACTIONS (8)
  - Product use in unapproved indication [Unknown]
  - Oedema peripheral [Recovering/Resolving]
  - Blood pressure increased [Unknown]
  - Fall [Unknown]
  - Blood pressure fluctuation [Not Recovered/Not Resolved]
  - Inappropriate schedule of product administration [Unknown]
  - Gait disturbance [Recovered/Resolved]
  - Micturition urgency [Unknown]

NARRATIVE: CASE EVENT DATE: 20210115
